FAERS Safety Report 15230726 (Version 1)
Quarter: 2018Q3

REPORT INFORMATION
  Report Type: Spontaneous
  Country: US (occurrence: US)
  Receive Date: 20180802
  Receipt Date: 20180802
  Transmission Date: 20181010
  Serious: No
  Sender: FDA-Public Use
  Company Number: US-SA-2018SA209098

PATIENT
  Age: 39 Year
  Sex: Female

DRUGS (5)
  1. PRALUENT [Suspect]
     Active Substance: ALIROCUMAB
     Indication: HYPERLIPIDAEMIA
     Dosage: 150 MG, QOW
     Route: 058
     Dates: start: 20171024
  2. PRALUENT [Suspect]
     Active Substance: ALIROCUMAB
     Indication: RHABDOMYOLYSIS
  3. PRALUENT [Suspect]
     Active Substance: ALIROCUMAB
     Indication: HYPERLIPIDAEMIA
  4. PRALUENT [Suspect]
     Active Substance: ALIROCUMAB
     Indication: RHABDOMYOLYSIS
     Dosage: 150 MG, QOW
     Route: 058
     Dates: start: 20171024
  5. ZETIA [Concomitant]
     Active Substance: EZETIMIBE

REACTIONS (1)
  - Dysphagia [Recovering/Resolving]
